FAERS Safety Report 23750585 (Version 3)
Quarter: 2024Q2

REPORT INFORMATION
  Report Type: Spontaneous
  Country: JP (occurrence: JP)
  Receive Date: 20240417
  Receipt Date: 20240520
  Transmission Date: 20240716
  Serious: Yes (Hospitalization, Disabling, Other)
  Sender: FDA-Public Use
  Company Number: JP-ABBVIE-5566757

PATIENT
  Age: 67 Year
  Sex: Male
  Weight: 47 kg

DRUGS (7)
  1. RINVOQ [Suspect]
     Active Substance: UPADACITINIB
     Indication: Rheumatoid arthritis
     Dosage: FORM STRENGTH: 7.5 MILLIGRAM
     Route: 048
     Dates: start: 20231106, end: 20231217
  2. REBAMIPIDE [Concomitant]
     Active Substance: REBAMIPIDE
     Indication: Chronic gastritis
     Dosage: TIME INTERVAL: 0.33333333 DAYS: FORM STRENGTH: 100 MG
     Route: 048
     Dates: start: 20230220
  3. RABEPRAZOLE SODIUM [Concomitant]
     Active Substance: RABEPRAZOLE SODIUM
     Indication: Gastrooesophageal reflux disease
     Dosage: FORM STRENGTH: 10 MG
     Route: 048
     Dates: start: 20231011
  4. PREDNISOLONE [Suspect]
     Active Substance: PREDNISOLONE
     Indication: Rheumatoid arthritis
     Dosage: 4 MILLIGRAM?FORM STRENGTH: 1 MG
     Route: 048
     Dates: start: 20231121, end: 20231218
  5. PREDNISOLONE [Suspect]
     Active Substance: PREDNISOLONE
     Indication: Rheumatoid arthritis
     Dosage: FORM STRENGTH: 1 MG
     Route: 048
     Dates: start: 20231219
  6. CLOSTRIDIUM BUTYRICUM SPORES STRAIN M-55 [Concomitant]
     Active Substance: CLOSTRIDIUM BUTYRICUM SPORES STRAIN M-55
     Indication: Enterocolitis
     Dosage: TIME INTERVAL: 0.33333333 DAYS: 6 TABLET
     Route: 048
     Dates: start: 20230306
  7. PREDONINE [Concomitant]
     Active Substance: PREDNISOLONE
     Indication: Rheumatoid arthritis
     Dosage: 5 MILLIGRAM
     Route: 048
     Dates: start: 20230306, end: 20231120

REACTIONS (19)
  - Lenticular opacities [Unknown]
  - Herpes zoster [Recovered/Resolved with Sequelae]
  - Face oedema [Unknown]
  - Blister [Unknown]
  - Vision blurred [Unknown]
  - Eye pain [Unknown]
  - Eyelid margin crusting [Unknown]
  - Eye discharge [Unknown]
  - Oral mucosa erosion [Unknown]
  - Conjunctival hyperaemia [Recovering/Resolving]
  - Corneal disorder [Unknown]
  - Corneal striae [Unknown]
  - Eye oedema [Unknown]
  - Deep anterior chamber of the eye [Unknown]
  - Iris adhesions [Unknown]
  - Visual acuity tests abnormal [Unknown]
  - Corneal erosion [Unknown]
  - Iritis [Unknown]
  - Keratitis [Unknown]

NARRATIVE: CASE EVENT DATE: 20231207
